FAERS Safety Report 5604461-1 (Version None)
Quarter: 2008Q1

REPORT INFORMATION
  Report Type: 
  Country: None (occurrence: None)
  Receive Date: 20080128
  Receipt Date: 20080114
  Transmission Date: 20080703
  Serious: Yes (Other)
  Sender: FDA-Public Use
  Company Number: US-ROCHE-540995

PATIENT
  Age: 68 Year
  Sex: Female

DRUGS (3)
  1. CELLCEPT [Suspect]
     Indication: CHRONIC INFLAMMATORY DEMYELINATING POLYRADICULONEUROPATHY
     Route: 048
  2. LEXAPRO [Concomitant]
  3. SYNTHROID [Concomitant]

REACTIONS (2)
  - BRONCHIECTASIS [None]
  - SINUSITIS [None]
